FAERS Safety Report 23536104 (Version 2)
Quarter: 2024Q1

REPORT INFORMATION
  Report Type: Spontaneous
  Country: IT (occurrence: IT)
  Receive Date: 20240219
  Receipt Date: 20240221
  Transmission Date: 20240409
  Serious: Yes (Other)
  Sender: FDA-Public Use
  Company Number: None

PATIENT
  Age: 67 Year
  Sex: Female
  Weight: 60 kg

DRUGS (4)
  1. CARBOPLATIN [Suspect]
     Active Substance: CARBOPLATIN
     Indication: Lung cancer metastatic
     Dosage: 400 MG INIZIO TERAPIA 05/07/2023 - II CICLO - TERAPIA OGNI 21 GIORNI
     Route: 042
     Dates: start: 20230726, end: 20230726
  2. CARBOPLATIN [Suspect]
     Active Substance: CARBOPLATIN
     Dosage: 400 MG, INIZIO TERAPIA 05/07/2023 - TERAPIA OGNI 21 GIORNI - III CICLO
     Route: 042
     Dates: start: 20230817, end: 20230817
  3. PEMETREXED [Suspect]
     Active Substance: PEMETREXED
     Indication: Lung cancer metastatic
     Dosage: 800 MG INIZIO TERAPIA 05/07/2023 - II CICLO - TERAPIA OGNI 21 GIORNI
     Route: 042
     Dates: start: 20230726, end: 20230726
  4. PEMETREXED [Suspect]
     Active Substance: PEMETREXED
     Dosage: 800 MG, INIZIO TERAPIA 05/07/2023 - TERAPIA OGNI 21 GIORNI - III CICLO
     Route: 042
     Dates: start: 20230817, end: 20230817

REACTIONS (6)
  - Leukopenia [Recovering/Resolving]
  - Neutropenia [Recovering/Resolving]
  - Red blood cell count decreased [Recovering/Resolving]
  - Asthenia [Recovering/Resolving]
  - Haemoglobin decreased [Recovering/Resolving]
  - Transaminases increased [Recovering/Resolving]

NARRATIVE: CASE EVENT DATE: 20230811
